FAERS Safety Report 15823099 (Version 1)
Quarter: 2019Q1

REPORT INFORMATION
  Report Type: Spontaneous
  Country: US (occurrence: US)
  Receive Date: 20190114
  Receipt Date: 20190114
  Transmission Date: 20190417
  Serious: Yes (Hospitalization)
  Sender: FDA-Public Use
  Company Number: US-TEVA-2019-US-997760

PATIENT
  Age: 76 Year
  Sex: Male

DRUGS (49)
  1. ACETAMINOPHEN. [Concomitant]
     Active Substance: ACETAMINOPHEN
     Indication: PAIN
     Dosage: PRN
     Route: 048
     Dates: start: 20181024
  2. ISAVUCONAZONIUM [Concomitant]
     Active Substance: ISAVUCONAZONIUM
     Indication: ASPERGILLUS INFECTION
     Route: 048
     Dates: start: 20181028, end: 20181030
  3. LORAZEPAM. [Concomitant]
     Active Substance: LORAZEPAM
     Indication: ANAESTHESIA
     Dosage: 0.5-1MG, PRN
     Route: 042
     Dates: start: 20181031
  4. ONDANSETRON [Concomitant]
     Active Substance: ONDANSETRON
     Dosage: 16 MILLIGRAM DAILY; PRN
     Route: 048
     Dates: start: 20181024
  5. METHYL PREDNISOLONE SODIUM SUCCINATE [Concomitant]
     Active Substance: METHYLPREDNISOLONE SODIUM SUCCINATE
     Indication: ANAPHYLACTIC REACTION
  6. CEFEPIME [Concomitant]
     Active Substance: CEFEPIME HYDROCHLORIDE
     Dosage: ONCE
     Route: 042
     Dates: start: 20181030, end: 20181030
  7. ACYCLOVIR. [Concomitant]
     Active Substance: ACYCLOVIR
     Indication: ANTIVIRAL PROPHYLAXIS
     Dosage: 800 MILLIGRAM DAILY;
     Route: 048
     Dates: start: 20181024
  8. SIMETHICONE (DIMETHICONE) [Concomitant]
     Active Substance: DIMETHICONE
     Indication: NAUSEA
     Dosage: ONCE
     Route: 048
     Dates: start: 20181025, end: 20181102
  9. VANCOMYCIN [Concomitant]
     Active Substance: VANCOMYCIN
     Indication: PNEUMONIA
     Dosage: 1000 MILLIGRAM DAILY;
     Route: 042
     Dates: start: 20181026, end: 20181031
  10. MEROPENEM. [Concomitant]
     Active Substance: MEROPENEM
     Indication: PNEUMONIA
     Route: 042
     Dates: start: 20181030, end: 20181031
  11. LEVOFLOXACIN. [Concomitant]
     Active Substance: LEVOFLOXACIN
     Indication: ANTIBIOTIC PROPHYLAXIS
     Dosage: 250 MILLIGRAM DAILY;
     Route: 048
     Dates: start: 20181109
  12. METHYL PREDNISOLONE SODIUM SUCCINATE [Concomitant]
     Active Substance: METHYLPREDNISOLONE SODIUM SUCCINATE
     Indication: DYSPNOEA
     Dosage: PRN
     Route: 042
     Dates: start: 20181024, end: 20181102
  13. CEFEPIME [Concomitant]
     Active Substance: CEFEPIME HYDROCHLORIDE
     Route: 042
     Dates: start: 20181028, end: 20181029
  14. MEPERIDINE [Concomitant]
     Active Substance: MEPERIDINE
     Indication: PAIN
     Dosage: ONCE
     Route: 042
     Dates: start: 20181025, end: 20181025
  15. CALCIUM GLUCONATE. [Concomitant]
     Active Substance: CALCIUM GLUCONATE
     Indication: MINERAL SUPPLEMENTATION
     Dosage: PRN
     Route: 042
     Dates: start: 20181026, end: 20181102
  16. LIDOCAINE 2% [Concomitant]
     Active Substance: LIDOCAINE
     Indication: BIOPSY BONE MARROW
     Dosage: ONCE
     Route: 023
     Dates: start: 20181031, end: 20181031
  17. METOPROLOL. [Concomitant]
     Active Substance: METOPROLOL
     Dosage: ONCE
     Route: 042
     Dates: start: 20181030, end: 20181030
  18. METOPROLOL TARTRATE. [Concomitant]
     Active Substance: METOPROLOL TARTRATE
     Indication: HYPERTENSION
     Dosage: 25 MILLIGRAM DAILY;
     Route: 048
     Dates: start: 20181030
  19. EDOXABAN [Concomitant]
     Active Substance: EDOXABAN TOSYLATE
     Indication: THROMBOSIS PROPHYLAXIS
     Dosage: 30 MILLIGRAM DAILY;
     Route: 048
     Dates: start: 20181120
  20. ALUMINUM AND MAGNESIUM HYDROXIDE- SIMETHICONE [Concomitant]
     Indication: DYSPEPSIA
     Dosage: 400-400-40MG/5 ML, PRN
     Route: 048
     Dates: start: 20181024, end: 20181102
  21. TRAMADOL. [Concomitant]
     Active Substance: TRAMADOL
     Indication: PAIN
     Dosage: PRN
     Route: 048
     Dates: start: 20181025, end: 20181102
  22. ISAVUCONAZONIUM [Concomitant]
     Active Substance: ISAVUCONAZONIUM
     Dosage: 372 MILLIGRAM DAILY;
     Route: 048
     Dates: start: 20181031
  23. NS INJECTION FLUSH [Concomitant]
     Dosage: PRN
     Route: 042
     Dates: start: 20181104
  24. FUROSEMIDE. [Concomitant]
     Active Substance: FUROSEMIDE
     Indication: OEDEMA
     Dosage: 20-40MG, PRN
     Route: 042
     Dates: start: 20181028
  25. LR BOLUS [Concomitant]
     Indication: ELECTROLYTE SUBSTITUTION THERAPY
     Dosage: ONCE
     Route: 042
     Dates: start: 20181027, end: 20181027
  26. LEVOFLOXACIN. [Concomitant]
     Active Substance: LEVOFLOXACIN
     Indication: ANTIBIOTIC PROPHYLAXIS
     Dosage: 250 MILLIGRAM DAILY;
     Route: 048
     Dates: start: 20181024, end: 20181102
  27. FLUCONAZOLE. [Concomitant]
     Active Substance: FLUCONAZOLE
     Indication: ANTIFUNGAL PROPHYLAXIS
     Dosage: 200 MILLIGRAM DAILY;
     Route: 048
     Dates: start: 20181024, end: 20181102
  28. HEPARIN 10 UNITS/ML [Concomitant]
     Indication: ANTICOAGULANT THERAPY
     Dosage: PRN
     Route: 003
     Dates: start: 20181019
  29. LEVOFLOXACIN. [Concomitant]
     Active Substance: LEVOFLOXACIN
     Dosage: ONCE
     Route: 048
     Dates: start: 20181101, end: 20181101
  30. AZACITIDINE. [Suspect]
     Active Substance: AZACITIDINE
     Indication: MYELODYSPLASTIC SYNDROME
     Dosage: UNIT DOSE: 75 MG/M2
     Route: 042
     Dates: start: 20181024, end: 20181030
  31. OMACETAXINE [Suspect]
     Active Substance: OMACETAXINE
     Indication: MYELODYSPLASTIC SYNDROME
     Dosage: 75 MG/M2
     Route: 058
     Dates: start: 20181024, end: 20181030
  32. ALUMINUM AND MAGNESIUM HYDROXIDE- SIMETHICONE [Concomitant]
     Indication: DYSPEPSIA
  33. LEVOFLOXACIN. [Concomitant]
     Active Substance: LEVOFLOXACIN
     Dosage: QOD
     Route: 048
     Dates: start: 20181103, end: 20181109
  34. METOPROLOL. [Concomitant]
     Active Substance: METOPROLOL
     Indication: HYPERTENSION
     Dosage: ONCE
     Route: 042
     Dates: start: 20181029, end: 20181029
  35. ALLOPURINOL. [Concomitant]
     Active Substance: ALLOPURINOL
     Indication: GOUT
     Dosage: 100 MILLIGRAM DAILY;
     Route: 048
     Dates: start: 20181024
  36. ALLOPURINOL. [Concomitant]
     Active Substance: ALLOPURINOL
     Indication: CHRONIC KIDNEY DISEASE
     Dosage: 600 MILLIGRAM DAILY;
     Route: 048
     Dates: start: 20181024, end: 20181025
  37. ONDANSETRON [Concomitant]
     Active Substance: ONDANSETRON
     Indication: NAUSEA
     Dosage: 8 MILLIGRAM DAILY;
     Route: 042
     Dates: start: 20181024, end: 20181030
  38. MAGNESUIM SULFATE [Concomitant]
     Indication: MINERAL SUPPLEMENTATION
     Dosage: PRN
     Route: 042
     Dates: start: 20181024, end: 20181102
  39. CEFEPIME [Concomitant]
     Active Substance: CEFEPIME HYDROCHLORIDE
     Indication: FEBRILE NEUTROPENIA
     Dosage: ONCE
     Route: 042
     Dates: start: 20181024, end: 20181024
  40. ZOLPIDEM [Concomitant]
     Active Substance: ZOLPIDEM\ZOLPIDEM TARTRATE
     Dosage: QHS
     Route: 048
     Dates: start: 20181029, end: 20181102
  41. HEPARIN FLUSH [Concomitant]
     Active Substance: HEPARIN SODIUM
     Dosage: ONCE
     Route: 042
     Dates: start: 20181031, end: 20181031
  42. VORICONAZOLE. [Concomitant]
     Active Substance: VORICONAZOLE
     Indication: ANTIFUNGAL PROPHYLAXIS
     Dosage: 400 MILLIGRAM DAILY;
     Route: 048
     Dates: start: 20181120
  43. ALLOPURINOL. [Concomitant]
     Active Substance: ALLOPURINOL
     Dosage: 300 MILLIGRAM DAILY;
     Route: 048
     Dates: start: 20181025, end: 20181102
  44. SODIUM DIMONOPHOSPHATE [Concomitant]
     Indication: SUPPLEMENTATION THERAPY
     Dosage: ONCE
     Route: 048
     Dates: start: 20181024, end: 20181024
  45. PROCHLORPERAZINE. [Concomitant]
     Active Substance: PROCHLORPERAZINE
     Indication: NAUSEA
     Dosage: PRN
     Route: 048
     Dates: start: 20181024, end: 20181031
  46. NS INFUSION [Concomitant]
     Indication: FLUID REPLACEMENT
     Dosage: 100ML/HR, CONTINUOUS, PRN
     Route: 042
     Dates: start: 20181024, end: 20181028
  47. ZOLPIDEM [Concomitant]
     Active Substance: ZOLPIDEM\ZOLPIDEM TARTRATE
     Indication: INSOMNIA
     Dosage: QHS
     Route: 048
     Dates: start: 20181025, end: 20181029
  48. MEROPENEM. [Concomitant]
     Active Substance: MEROPENEM
     Indication: FEBRILE NEUTROPENIA
     Route: 042
     Dates: start: 20181031, end: 20181101
  49. LOVENOX [Concomitant]
     Active Substance: ENOXAPARIN SODIUM
     Indication: THROMBOSIS PROPHYLAXIS
     Dosage: 60 MILLIGRAM DAILY;
     Route: 058
     Dates: start: 20181120

REACTIONS (6)
  - Pyrexia [Recovered/Resolved]
  - Febrile neutropenia [Recovered/Resolved]
  - Hypoxia [Recovered/Resolved]
  - Acute kidney injury [Recovering/Resolving]
  - Blood creatinine increased [Recovering/Resolving]
  - Pneumonia [Unknown]

NARRATIVE: CASE EVENT DATE: 20181024
